FAERS Safety Report 23476777 (Version 1)
Quarter: 2024Q1

REPORT INFORMATION
  Report Type: Report from Study
  Country: TW (occurrence: TW)
  Receive Date: 20240204
  Receipt Date: 20240204
  Transmission Date: 20240410
  Serious: No
  Sender: FDA-Public Use
  Company Number: TW-IPSEN Group, Research and Development-2023-11328

PATIENT
  Age: 69 Year
  Sex: Male

DRUGS (1)
  1. CABOMETYX [Suspect]
     Active Substance: CABOZANTINIB S-MALATE
     Indication: Renal cell carcinoma
     Dosage: TAKING CABOMETYX QD FROM 5/9 TO 6/5TAKING CABOMETYX 1 DAY AND OFF 2 DAYS FROM 6/6
     Route: 048
     Dates: start: 20230509

REACTIONS (5)
  - Liver function test increased [Not Recovered/Not Resolved]
  - Bone pain [Not Recovered/Not Resolved]
  - Hypertension [Not Recovered/Not Resolved]
  - Pruritus [Not Recovered/Not Resolved]
  - Off label use [Unknown]

NARRATIVE: CASE EVENT DATE: 20230514
